FAERS Safety Report 20813899 (Version 4)
Quarter: 2022Q2

REPORT INFORMATION
  Report Type: Spontaneous
  Country: US (occurrence: US)
  Receive Date: 20220511
  Receipt Date: 20220614
  Transmission Date: 20220721
  Serious: Yes (Hospitalization, Other)
  Sender: FDA-Public Use
  Company Number: US-UROGEN PHARMA LTD.-2022-UGN-000045

PATIENT

DRUGS (5)
  1. JELMYTO [Suspect]
     Active Substance: MITOMYCIN
     Indication: Transitional cell cancer of the renal pelvis and ureter
     Dosage: 8 MILLILITER,ONE TIMES PER WEEK (INSTILLATION)
     Dates: start: 20220324, end: 20220324
  2. JELMYTO [Suspect]
     Active Substance: MITOMYCIN
     Dosage: 8 MILLILITER,ONE TIMES PER WEEK (INSTILLATION)
     Dates: start: 20220330, end: 20220330
  3. JELMYTO [Suspect]
     Active Substance: MITOMYCIN
     Dosage: 8 MILLILITER,ONE TIMES PER WEEK (INSTILLATION)
     Dates: start: 20220407, end: 20220407
  4. JELMYTO [Suspect]
     Active Substance: MITOMYCIN
     Dosage: 8 MILLILITER,ONE TIMES PER WEEK (INSTILLATION)
     Dates: start: 20220414, end: 20220414
  5. JELMYTO [Suspect]
     Active Substance: MITOMYCIN
     Dosage: 8 MILLILITER,ONE TIMES PER WEEK (INSTILLATION)
     Dates: start: 20220420, end: 20220420

REACTIONS (4)
  - Nephrolithiasis [Unknown]
  - Flank pain [Unknown]
  - Hydronephrosis [Unknown]
  - Urinary tract infection [Unknown]

NARRATIVE: CASE EVENT DATE: 20220101
